FAERS Safety Report 10587045 (Version 1)
Quarter: 2014Q4

REPORT INFORMATION
  Report Type: Spontaneous
  Country: US (occurrence: None)
  Receive Date: 20141114
  Receipt Date: 20141114
  Transmission Date: 20150529
  Serious: Yes (Disabling)
  Sender: FDA-Public Use
  Company Number: None

PATIENT
  Age: 17 Year
  Sex: Female

DRUGS (2)
  1. OVCON 35 [Suspect]
     Active Substance: ETHINYL ESTRADIOL\NORETHINDRONE
     Dates: start: 20110708, end: 20111008
  2. ORTHO EVRA [Suspect]
     Active Substance: ETHINYL ESTRADIOL\NORELGESTROMIN
     Dates: start: 20100427, end: 20100914

REACTIONS (2)
  - Seizure [None]
  - Mitochondrial cytopathy [None]

NARRATIVE: CASE EVENT DATE: 20111018
